FAERS Safety Report 23258424 (Version 1)
Quarter: 2023Q4

REPORT INFORMATION
  Report Type: Spontaneous
  Country: US (occurrence: US)
  Receive Date: 20231204
  Receipt Date: 20231204
  Transmission Date: 20240110
  Serious: No
  Sender: FDA-Public Use
  Company Number: US-OPELLA-2023OHG015811

PATIENT
  Sex: Female

DRUGS (1)
  1. ICY HOT VANISHING SCENT [Suspect]
     Active Substance: MENTHOL
     Indication: Product used for unknown indication
     Dosage: FREQUENCY: 4 TIMES
     Dates: start: 2023

REACTIONS (2)
  - Expired product administered [Unknown]
  - No adverse event [Unknown]

NARRATIVE: CASE EVENT DATE: 20230101
